FAERS Safety Report 8617307-4 (Version None)
Quarter: 2012Q3

REPORT INFORMATION
  Report Type: 
  Country: None (occurrence: None)
  Receive Date: 20120823
  Receipt Date: 20120810
  Transmission Date: 20120928
  Serious: Yes (Other)
  Sender: FDA-Public Use
  Company Number: GB-MYLANLABS-2012S1016651

PATIENT
  Age: 30 Year
  Sex: Female
  Weight: 62 kg

DRUGS (2)
  1. NORDETTE-28 [Concomitant]
     Indication: PRODUCT USED FOR UNKNOWN INDICATION
  2. CETIRIZINE [Suspect]
     Indication: SEASONAL ALLERGY
     Dates: start: 20120712, end: 20120712

REACTIONS (4)
  - EMOTIONAL DISORDER [None]
  - PALPITATIONS [None]
  - HYPOTONIA [None]
  - ARTHRALGIA [None]
